FAERS Safety Report 14945596 (Version 1)
Quarter: 2018Q2

REPORT INFORMATION
  Report Type: Spontaneous
  Country: US (occurrence: US)
  Receive Date: 20180529
  Receipt Date: 20180529
  Transmission Date: 20180711
  Serious: No
  Sender: FDA-Public Use
  Company Number: US-BRISTOL-MYERS SQUIBB COMPANY-BMS-2018-048617

PATIENT
  Age: 49 Year
  Sex: Male
  Weight: 103 kg

DRUGS (11)
  1. LACTOBACILLUS [Concomitant]
     Active Substance: LACTOBACILLUS ACIDOPHILUS
     Indication: ADIPOSIS DOLOROSA
     Dosage: 1 DF, QD
     Route: 048
  2. METFORMIN HYDROCHLORIDE. [Suspect]
     Active Substance: METFORMIN HYDROCHLORIDE
     Indication: METABOLIC SYNDROME
     Dosage: 500 MG, QD
     Route: 048
     Dates: start: 201707
  3. RAPAMUNE [Concomitant]
     Active Substance: SIROLIMUS
     Indication: ADIPOSIS DOLOROSA
     Dosage: 0.5 MG, QD
     Route: 048
  4. LYRICA [Concomitant]
     Active Substance: PREGABALIN
     Indication: ADIPOSIS DOLOROSA
     Dosage: 150 MG, TID
     Route: 048
  5. NALTREXONE [Concomitant]
     Active Substance: NALTREXONE
     Indication: ADIPOSIS DOLOROSA
     Dosage: 8 MG, QD
     Route: 048
  6. TESTOSTERONE. [Concomitant]
     Active Substance: TESTOSTERONE
     Indication: ADIPOSIS DOLOROSA
     Dosage: 1.5 ML, Q2WK
     Route: 030
  7. NALTREXONE HYDROCHLORIDE. [Concomitant]
     Active Substance: NALTREXONE HYDROCHLORIDE
     Indication: ADIPOSIS DOLOROSA
     Dosage: 8 MG, QD
     Route: 048
  8. T4 [Concomitant]
     Active Substance: LEVOTHYROXINE
     Indication: HYPOTHYROIDISM
     Dosage: 175 MG, QD
     Route: 048
  9. OXYCODONE [Concomitant]
     Active Substance: OXYCODONE
     Indication: ADIPOSIS DOLOROSA
     Dosage: 20 MG, UNK
     Route: 048
  10. COLLAGEN [Concomitant]
     Active Substance: COLLAGEN
     Indication: ADIPOSIS DOLOROSA
     Dosage: 200 MG, QD
     Route: 048
  11. CARNITINE [Concomitant]
     Active Substance: CARNITINE
     Indication: PRODUCT USED FOR UNKNOWN INDICATION
     Dosage: 500 MG, QD
     Route: 048

REACTIONS (1)
  - Drug ineffective [Unknown]

NARRATIVE: CASE EVENT DATE: 20180524
